FAERS Safety Report 9311190 (Version 1)
Quarter: 2013Q2

REPORT INFORMATION
  Report Type: Spontaneous
  Country: US (occurrence: US)
  Receive Date: 20130528
  Receipt Date: 20130528
  Transmission Date: 20140414
  Serious: No
  Sender: FDA-Public Use
  Company Number: US-BAYER-2013-064473

PATIENT
  Age: 53 Year
  Sex: Female

DRUGS (1)
  1. ULTRAVIST [Suspect]
     Dosage: 75 ML, ONCE
     Route: 042
     Dates: start: 20130523, end: 20130523

REACTIONS (4)
  - Sneezing [None]
  - Pruritus [None]
  - Urticaria [None]
  - Flushing [None]
